FAERS Safety Report 9496771 (Version 3)
Quarter: 2013Q4

REPORT INFORMATION
  Report Type: Spontaneous
  Country: JP (occurrence: JP)
  Receive Date: 20130904
  Receipt Date: 20131216
  Transmission Date: 20140711
  Serious: Yes (Death)
  Sender: FDA-Public Use
  Company Number: JP-PFIZER INC-2013252664

PATIENT
  Age: 66 Year
  Sex: Male
  Weight: 47.5 kg

DRUGS (10)
  1. VFEND [Suspect]
     Indication: BRONCHOPULMONARY ASPERGILLOSIS
     Dosage: 282 MG, 1X/DAY
     Route: 041
     Dates: start: 20130813, end: 20130814
  2. VFEND [Suspect]
     Dosage: 141 MG, 1X/DAY
     Route: 041
     Dates: start: 20130814, end: 20130814
  3. VFEND [Suspect]
     Dosage: 141 MG, 2X/DAY
     Route: 041
     Dates: start: 20130815, end: 20130816
  4. ITRIZOLE [Suspect]
     Indication: BRONCHOPULMONARY ASPERGILLOSIS
     Dosage: 200 MG, 2X/DAY
     Route: 041
     Dates: start: 20130817, end: 20130817
  5. TAKEPRON [Concomitant]
     Route: 048
  6. MAGMITT [Concomitant]
  7. MEDICON [Concomitant]
  8. CODEINE PHOSPHATE [Concomitant]
     Route: 048
  9. CALONAL [Concomitant]
     Route: 048
  10. SENNOSIDES [Concomitant]
     Route: 048

REACTIONS (7)
  - Completed suicide [Fatal]
  - Decreased appetite [Unknown]
  - Dizziness [Recovering/Resolving]
  - Hot flush [Unknown]
  - Visual impairment [Recovering/Resolving]
  - Hot flush [Unknown]
  - Photophobia [Unknown]
